FAERS Safety Report 8663286 (Version 2)
Quarter: 2013Q2

REPORT INFORMATION
  Report Type: Report from Study
  Country: JP (occurrence: JP)
  Receive Date: 20120713
  Receipt Date: 20130515
  Transmission Date: 20140414
  Serious: Yes (Hospitalization, Other)
  Sender: FDA-Public Use
  Company Number: JP-AMGEN-JPNCT2012043052

PATIENT
  Age: 74 Year
  Sex: Male
  Weight: 52 kg

DRUGS (26)
  1. DARBEPOETIN ALFA [Suspect]
     Indication: NEPHROGENIC ANAEMIA
     Dosage: 60 MUG, QD
     Route: 040
     Dates: start: 20101208, end: 20101208
  2. DARBEPOETIN ALFA [Suspect]
     Dosage: 60 MUG, QD
     Route: 040
     Dates: start: 20110106, end: 20110106
  3. DARBEPOETIN ALFA [Suspect]
     Dosage: 60 MUG, QD
     Route: 040
     Dates: start: 20110119
  4. DARBEPOETIN ALFA [Suspect]
     Dosage: 40 MUG, QD
     Route: 040
     Dates: start: 20110323
  5. DARBEPOETIN ALFA [Suspect]
     Dosage: 60 MUG, QD
     Route: 040
     Dates: start: 20110427, end: 20110427
  6. DARBEPOETIN ALFA [Suspect]
     Dosage: 60 MUG, Q2WK
     Route: 058
     Dates: start: 20110526, end: 20110608
  7. DARBEPOETIN ALFA [Suspect]
     Dosage: 60 MUG, Q2WK
     Route: 040
     Dates: start: 20110727
  8. DARBEPOETIN ALFA [Suspect]
     Dosage: 60 MUG, Q4WK
     Route: 040
     Dates: start: 20110824, end: 20110921
  9. DARBEPOETIN ALFA [Suspect]
     Dosage: 60 MUG, Q2WK
     Route: 040
     Dates: start: 20111005, end: 20111128
  10. DARBEPOETIN ALFA [Suspect]
     Dosage: 60 MUG, QWK
     Route: 040
     Dates: start: 20111226, end: 20120104
  11. CALBLOCK [Concomitant]
     Indication: HYPERTENSION
     Dosage: UNK
     Route: 048
  12. FOLIAMIN [Concomitant]
     Indication: FOLATE DEFICIENCY
     Dosage: UNK
     Route: 048
  13. ZYLORIC [Concomitant]
     Indication: HYPERURICAEMIA
     Dosage: UNK
     Route: 048
  14. FUROSEMIDE [Concomitant]
     Indication: HYPERTENSION
     Dosage: UNK
     Route: 048
  15. SIGMART [Concomitant]
     Indication: ANGINA PECTORIS
     Dosage: UNK
     Route: 048
  16. ITOROL [Concomitant]
     Indication: ANGINA PECTORIS
     Dosage: UNK
     Route: 048
  17. NORVASC [Concomitant]
     Indication: HYPERTENSION
     Dosage: UNK
     Route: 048
  18. MEVALOTIN [Concomitant]
     Indication: HYPERLIPIDAEMIA
     Dosage: UNK
     Route: 048
  19. TAKEPRON [Concomitant]
     Dosage: UNK
     Route: 048
  20. SODIUM BICARBONATE [Concomitant]
     Dosage: UNK
     Route: 048
  21. IRBETAN [Concomitant]
     Indication: HYPERTENSION
     Dosage: UNK
     Route: 048
  22. ARICEPT [Concomitant]
     Indication: DEMENTIA
     Dosage: UNK
     Route: 048
  23. NOVORAPID [Concomitant]
     Indication: DIABETES MELLITUS
     Dosage: UNK
     Route: 065
  24. LANTUS [Concomitant]
     Indication: DIABETES MELLITUS
     Dosage: UNK
     Route: 065
  25. CALCIUM LACTATE [Concomitant]
     Dosage: 6 G, UNK
     Route: 048
  26. PLAVIX [Concomitant]
     Dosage: UNK
     Route: 048

REACTIONS (5)
  - Cardiac failure chronic [Recovering/Resolving]
  - Hypocalcaemia [Recovered/Resolved]
  - Hyperparathyroidism secondary [Recovered/Resolved]
  - Renal failure chronic [Not Recovered/Not Resolved]
  - Renal failure chronic [Not Recovered/Not Resolved]
